FAERS Safety Report 25258864 (Version 5)
Quarter: 2025Q2

REPORT INFORMATION
  Report Type: Spontaneous
  Country: JP (occurrence: JP)
  Receive Date: 20250501
  Receipt Date: 20250602
  Transmission Date: 20250717
  Serious: Yes (Death, Hospitalization, Other)
  Sender: ROCHE
  Company Number: JP-CHUGAI-2025012612

PATIENT
  Age: 82 Year
  Sex: Male
  Weight: 49.4 kg

DRUGS (8)
  1. LUNSUMIO [Suspect]
     Active Substance: MOSUNETUZUMAB-AXGB
     Indication: Follicular lymphoma
     Route: 042
     Dates: start: 20250408, end: 20250408
  2. GAZYVA [Suspect]
     Active Substance: OBINUTUZUMAB
     Indication: Follicular lymphoma
     Route: 042
     Dates: start: 20250217, end: 20250228
  3. GAZYVA [Suspect]
     Active Substance: OBINUTUZUMAB
     Route: 042
     Dates: start: 20250310, end: 20250314
  4. CYCLOPHOSPHAMIDE [Concomitant]
     Active Substance: CYCLOPHOSPHAMIDE
  5. DOXORUBICIN HYDROCHLORIDE [Concomitant]
     Active Substance: DOXORUBICIN HYDROCHLORIDE
  6. VINCRISTINE SULFATE [Concomitant]
     Active Substance: VINCRISTINE SULFATE
  7. PREDNISOLONE [Concomitant]
     Active Substance: PREDNISOLONE
  8. BENDAMUSTINE HYDROCHLORIDE [Concomitant]
     Active Substance: BENDAMUSTINE HYDROCHLORIDE

REACTIONS (5)
  - Cytokine release syndrome [Recovering/Resolving]
  - Decreased activity [Fatal]
  - Follicular lymphoma [Fatal]
  - Malaise [Not Recovered/Not Resolved]
  - Decreased appetite [Fatal]

NARRATIVE: CASE EVENT DATE: 20250409
